FAERS Safety Report 9049516 (Version 1)
Quarter: 2013Q1

REPORT INFORMATION
  Report Type: Spontaneous
  Country: US (occurrence: US)
  Receive Date: 20130205
  Receipt Date: 20130205
  Transmission Date: 20140127
  Serious: Yes (Other)
  Sender: FDA-Public Use
  Company Number: US-ELI_LILLY_AND_COMPANY-US201301010473

PATIENT
  Sex: 0

DRUGS (3)
  1. GEMCITABINE HYDROCHLORIDE [Suspect]
     Indication: TRANSITIONAL CELL CARCINOMA
     Dosage: UNK UNK, OTHER
  2. IFOSFAMIDE [Concomitant]
     Indication: TRANSITIONAL CELL CARCINOMA
  3. DOXORUBICIN [Concomitant]
     Indication: TRANSITIONAL CELL CARCINOMA

REACTIONS (1)
  - Presyncope [Unknown]
